FAERS Safety Report 9419760 (Version 2)
Quarter: 2013Q3

REPORT INFORMATION
  Report Type: Report from Study
  Country: CA (occurrence: CA)
  Receive Date: 20130725
  Receipt Date: 20130826
  Transmission Date: 20140515
  Serious: Yes (Hospitalization)
  Sender: FDA-Public Use
  Company Number: CA-JNJFOC-20130704525

PATIENT
  Age: 33 Year
  Sex: Female
  Weight: 63.5 kg

DRUGS (3)
  1. SIMPONI [Suspect]
     Indication: CROHN^S DISEASE
     Route: 058
     Dates: start: 20130625
  2. SIMPONI [Suspect]
     Indication: CROHN^S DISEASE
     Route: 058
     Dates: end: 20130816
  3. SIMPONI [Suspect]
     Indication: CROHN^S DISEASE
     Route: 058
     Dates: start: 20130709

REACTIONS (4)
  - Haematochezia [Unknown]
  - Back pain [Unknown]
  - Throat tightness [Recovered/Resolved]
  - Off label use [Unknown]
